FAERS Safety Report 6276267-4 (Version None)
Quarter: 2009Q3

REPORT INFORMATION
  Report Type: 
  Country: None (occurrence: None)
  Receive Date: 20090722
  Receipt Date: 20090713
  Transmission Date: 20100115
  Serious: Yes (Other)
  Sender: FDA-Public Use
  Company Number: CA-JNJFOC-20090704046

PATIENT
  Sex: Male
  Weight: 82 kg

DRUGS (18)
  1. REMICADE [Suspect]
     Route: 042
  2. REMICADE [Suspect]
     Route: 042
  3. REMICADE [Suspect]
     Route: 042
  4. REMICADE [Suspect]
     Route: 042
  5. REMICADE [Suspect]
     Route: 042
  6. REMICADE [Suspect]
     Route: 042
  7. REMICADE [Suspect]
     Route: 042
  8. REMICADE [Suspect]
     Route: 042
  9. REMICADE [Suspect]
     Indication: RHEUMATOID ARTHRITIS
     Route: 042
  10. OMEPRAZOLE [Concomitant]
  11. LEFLUNOMIDE [Concomitant]
     Dosage: 1 TABLET DAILY
  12. PREDNISONE [Concomitant]
     Dosage: 5MG: 3 TABLETS DAILY
  13. VOLTAREN [Concomitant]
  14. METFORMIN HCL [Concomitant]
  15. SYNTHROID [Concomitant]
  16. NORVASC [Concomitant]
  17. ACCURETIC [Concomitant]
  18. ACTONEL [Concomitant]

REACTIONS (3)
  - NERVE COMPRESSION [None]
  - SCIATICA [None]
  - SKIN DISCOLOURATION [None]
